FAERS Safety Report 4787584-9 (Version None)
Quarter: 2005Q4

REPORT INFORMATION
  Report Type: 
  Country: None (occurrence: None)
  Receive Date: 20051003
  Receipt Date: 20050919
  Transmission Date: 20060501
  Serious: Yes (Disabling, Other)
  Sender: FDA-Public Use
  Company Number: 2005116516

PATIENT
  Age: 73 Year
  Sex: Male

DRUGS (8)
  1. SILDENAFIL CITRATE [Suspect]
     Indication: PULMONARY HYPERTENSION
     Dosage: 100 MG (25 MG, 4 IN 1 D), ORAL
     Route: 048
     Dates: start: 20050713, end: 20050818
  2. BOSENTAN [Concomitant]
  3. WARFARIN SODIUM [Concomitant]
  4. ZYLOPRIM [Concomitant]
  5. SIMVASTATIN [Concomitant]
  6. LASIX [Concomitant]
  7. AMIODARONE HCL [Concomitant]
  8. AMILORIDE (AMILORIDE) [Concomitant]

REACTIONS (7)
  - DIFFICULTY IN WALKING [None]
  - DISEASE PROGRESSION [None]
  - DYSPNOEA [None]
  - EXERCISE TOLERANCE DECREASED [None]
  - FEELING ABNORMAL [None]
  - OEDEMA PERIPHERAL [None]
  - PULMONARY HYPERTENSION [None]
